FAERS Safety Report 6436070-9 (Version None)
Quarter: 2009Q4

REPORT INFORMATION
  Report Type: 
  Country: None (occurrence: None)
  Receive Date: 20091111
  Receipt Date: 20091105
  Transmission Date: 20100525
  Serious: Yes (Hospitalization, Other)
  Sender: FDA-Public Use
  Company Number: US-ELI_LILLY_AND_COMPANY-US200911002415

PATIENT
  Sex: Female

DRUGS (10)
  1. HUMALOG MIX 75/25 [Suspect]
     Dates: start: 20030101
  2. HUMALOG MIX 75/25 [Suspect]
     Dosage: UNK, UNK
     Dates: start: 20091101
  3. KEPPRA [Concomitant]
  4. LAMICTAL [Concomitant]
  5. CYMBALTA [Concomitant]
  6. GABAPENTIN [Concomitant]
  7. AGGRENOX [Concomitant]
  8. ASPIRIN [Concomitant]
  9. LISINOPRIL [Concomitant]
  10. ATENOLOL [Concomitant]

REACTIONS (2)
  - EPILEPSY [None]
  - TRANSIENT ISCHAEMIC ATTACK [None]
